FAERS Safety Report 8145366-4 (Version None)
Quarter: 2012Q1

REPORT INFORMATION
  Report Type: 
  Country: None (occurrence: None)
  Receive Date: 20120217
  Receipt Date: 20120213
  Transmission Date: 20120608
  Serious: Yes (Hospitalization)
  Sender: FDA-Public Use
  Company Number: US-TEVA-322764USA

PATIENT
  Age: 44 Year
  Sex: Female

DRUGS (4)
  1. BUPROPION HCL [Concomitant]
     Route: 065
  2. PROPRANOLOL [Concomitant]
     Route: 065
  3. FENTANYL [Suspect]
     Indication: SEDATION
     Route: 065
  4. MIDAZOLAM [Suspect]
     Indication: SEDATION
     Route: 065

REACTIONS (2)
  - SOMNOLENCE [None]
  - SOMATOFORM DISORDER [None]
